FAERS Safety Report 13110550 (Version 1)
Quarter: 2017Q1

REPORT INFORMATION
  Report Type: Spontaneous
  Country: US (occurrence: US)
  Receive Date: 20170112
  Receipt Date: 20170112
  Transmission Date: 20170428
  Serious: No
  Sender: FDA-Public Use
  Company Number: US-ROCHE-GNE309534

PATIENT
  Age: 84 Year
  Sex: Male
  Weight: 94.4 kg

DRUGS (2)
  1. ACTIVASE [Suspect]
     Active Substance: ALTEPLASE
     Dosage: 78.1 MG, X1
     Route: 042
     Dates: start: 20101104
  2. ACTIVASE [Suspect]
     Active Substance: ALTEPLASE
     Indication: ISCHAEMIC STROKE
     Dosage: 8.7 MG, X1
     Route: 040
     Dates: start: 20101104, end: 20101104

REACTIONS (2)
  - Retinal haemorrhage [Recovered/Resolved]
  - Vision blurred [None]

NARRATIVE: CASE EVENT DATE: 20101104
